FAERS Safety Report 15853444 (Version 2)
Quarter: 2019Q1

REPORT INFORMATION
  Report Type: Spontaneous
  Country: US (occurrence: US)
  Receive Date: 20190122
  Receipt Date: 20190130
  Transmission Date: 20190417
  Serious: No
  Sender: FDA-Public Use
  Company Number: US-SA-2019SA014685

PATIENT
  Age: 61 Year
  Sex: Male

DRUGS (2)
  1. LANTUS [Suspect]
     Active Substance: INSULIN GLARGINE
     Indication: TYPE 3 DIABETES MELLITUS
     Dosage: UNK UNK, QD
     Route: 065
  2. TOUJEO [Suspect]
     Active Substance: INSULIN GLARGINE
     Indication: TYPE 3 DIABETES MELLITUS
     Dosage: 80 U, QD
     Route: 065

REACTIONS (2)
  - Device operational issue [Unknown]
  - Drug ineffective [Unknown]
